FAERS Safety Report 19400969 (Version 3)
Quarter: 2021Q3

REPORT INFORMATION
  Report Type: Spontaneous
  Country: US (occurrence: US)
  Receive Date: 20210610
  Receipt Date: 20210913
  Transmission Date: 20211014
  Serious: No
  Sender: FDA-Public Use
  Company Number: US-SA-2021SA190381

PATIENT
  Age: 64 Year
  Sex: Female

DRUGS (5)
  1. INDOMETHACIN [INDOMETACIN] [Concomitant]
     Active Substance: INDOMETHACIN
     Dosage: UNK
  2. TACROLIMUS. [Concomitant]
     Active Substance: TACROLIMUS
     Dosage: UNK
  3. METHOCARBAMOL. [Concomitant]
     Active Substance: METHOCARBAMOL
     Dosage: UNK
  4. DUPIXENT [Suspect]
     Active Substance: DUPILUMAB
     Indication: DERMATITIS ATOPIC
     Dosage: 300 MG, QOW
     Route: 058
     Dates: start: 202104
  5. VITAMIN D3 [Concomitant]
     Active Substance: CHOLECALCIFEROL
     Dosage: UNK

REACTIONS (6)
  - Arthralgia [Not Recovered/Not Resolved]
  - Lack of injection site rotation [Unknown]
  - Muscular weakness [Not Recovered/Not Resolved]
  - Wrong technique in device usage process [Unknown]
  - Nerve compression [Unknown]
  - Product storage error [Unknown]

NARRATIVE: CASE EVENT DATE: 2021
